FAERS Safety Report 7483945-8 (Version None)
Quarter: 2011Q2

REPORT INFORMATION
  Report Type: 
  Country: None (occurrence: None)
  Receive Date: 20110517
  Receipt Date: 20110511
  Transmission Date: 20111010
  Serious: Yes (Hospitalization)
  Sender: FDA-Public Use
  Company Number: NL-PFIZER INC-2011101992

PATIENT
  Age: 67 Year
  Sex: Male

DRUGS (1)
  1. REVATIO [Suspect]
     Indication: PULMONARY HYPERTENSION
     Dosage: 20 MG, UNK
     Route: 048
     Dates: end: 20110511

REACTIONS (4)
  - CARDIAC FAILURE [None]
  - CONSTIPATION [None]
  - NASAL CONGESTION [None]
  - DYSPNOEA [None]
